FAERS Safety Report 10504971 (Version 1)
Quarter: 2014Q4

REPORT INFORMATION
  Report Type: Spontaneous
  Country: US (occurrence: US)
  Receive Date: 20141008
  Receipt Date: 20141008
  Transmission Date: 20150528
  Serious: Yes (Death, Other)
  Sender: FDA-Public Use
  Company Number: US-GILEAD-2014-0117619

PATIENT
  Age: 79 Year
  Sex: Male

DRUGS (20)
  1. AMITRIPTYLINE [Concomitant]
     Active Substance: AMITRIPTYLINE
  2. NEXIUM [Concomitant]
     Active Substance: ESOMEPRAZOLE MAGNESIUM
  3. COMBIVENT [Concomitant]
     Active Substance: ALBUTEROL SULFATE\IPRATROPIUM BROMIDE
  4. TRAVATAN Z [Concomitant]
     Active Substance: TRAVOPROST
  5. LOSARTAN POTASSIUM. [Concomitant]
     Active Substance: LOSARTAN POTASSIUM
  6. NOVOLOG [Concomitant]
     Active Substance: INSULIN ASPART
  7. FENOFIBRATE. [Concomitant]
     Active Substance: FENOFIBRATE
  8. LETAIRIS [Suspect]
     Active Substance: AMBRISENTAN
     Indication: PRODUCT USED FOR UNKNOWN INDICATION
     Route: 065
     Dates: start: 20120206, end: 20140919
  9. GABAPENTIN. [Concomitant]
     Active Substance: GABAPENTIN
  10. ADVAIR HFA [Concomitant]
     Active Substance: FLUTICASONE PROPIONATE\SALMETEROL XINAFOATE
  11. PREDNISOLONE. [Concomitant]
     Active Substance: PREDNISOLONE
  12. ISOSORBIDE [Concomitant]
     Active Substance: ISOSORBIDE
  13. SUCRALFATE. [Concomitant]
     Active Substance: SUCRALFATE
  14. LASIX [Concomitant]
     Active Substance: FUROSEMIDE
  15. LANTUS [Concomitant]
     Active Substance: INSULIN GLARGINE
  16. LYRICA [Concomitant]
     Active Substance: PREGABALIN
  17. VALIUM [Concomitant]
     Active Substance: DIAZEPAM
  18. WARFARIN [Concomitant]
     Active Substance: WARFARIN
  19. COLCHICINE. [Concomitant]
     Active Substance: COLCHICINE
  20. OMEPRAZOLE. [Concomitant]
     Active Substance: OMEPRAZOLE

REACTIONS (1)
  - Death [Fatal]

NARRATIVE: CASE EVENT DATE: 20140919
